FAERS Safety Report 7693341-6 (Version None)
Quarter: 2011Q3

REPORT INFORMATION
  Report Type: 
  Country: None (occurrence: None)
  Receive Date: 20110819
  Receipt Date: 20110805
  Transmission Date: 20111222
  Serious: No
  Sender: FDA-Public Use
  Company Number: FR-UCBSA-036434

PATIENT
  Sex: Female
  Weight: 57 kg

DRUGS (3)
  1. METHOTREXATE [Concomitant]
     Route: 048
  2. VOLTAREN [Concomitant]
     Route: 048
  3. CIMZIA [Suspect]
     Indication: RHEUMATOID ARTHRITIS
     Dosage: WEEK 0,2 AND 4 THEN 200MG
     Route: 058
     Dates: start: 20110507, end: 20110618

REACTIONS (2)
  - PRURITUS [None]
  - DERMATITIS EXFOLIATIVE [None]
